FAERS Safety Report 8915777 (Version 3)
Quarter: 2012Q4

REPORT INFORMATION
  Report Type: 
  Country: DK (occurrence: JP)
  Receive Date: 20121119
  Receipt Date: 20121211
  Transmission Date: 20130627
  Serious: Yes (Other)
  Sender: FDA-Public Use
  Company Number: JP-FRI-1000040465

PATIENT
  Age: 73 Year
  Sex: Male
  Weight: 52 kg

DRUGS (3)
  1. LEXAPRO [Suspect]
     Indication: DEPRESSION
     Dosage: 10 mg
     Route: 048
     Dates: start: 20120926, end: 20121017
  2. LENDORMIN [Concomitant]
     Indication: DEPRESSION
     Dosage: 0.25 mg
     Route: 048
     Dates: start: 20120926, end: 20121017
  3. MAGMITT [Concomitant]
     Indication: CONSTIPATION
     Dosage: 330 mg
     Route: 048
     Dates: start: 20120823, end: 20120929

REACTIONS (2)
  - Haematuria [Recovering/Resolving]
  - Urinary retention [Recovering/Resolving]
